FAERS Safety Report 4283547-0 (Version None)
Quarter: 2004Q1

REPORT INFORMATION
  Report Type: 
  Country: None (occurrence: None)
  Receive Date: 20040120
  Receipt Date: 20030528
  Transmission Date: 20041129
  Serious: Yes (Other)
  Sender: FDA-Public Use
  Company Number: US-JNJFOC-20030701355

PATIENT
  Age: 38 Year
  Sex: Female
  Weight: 58.6501 kg

DRUGS (1)
  1. COPPER T MODEL TCU 380A [Suspect]
     Indication: CONTRACEPTION
     Dosage: 1 DOSE (S) INTRAUTERINE
     Route: 015
     Dates: start: 20000313, end: 20030224

REACTIONS (1)
  - CERVICAL DYSPLASIA [None]
